FAERS Safety Report 4888757-7 (Version None)
Quarter: 2005Q4

REPORT INFORMATION
  Report Type: 
  Country: None (occurrence: None)
  Receive Date: 20051215
  Receipt Date: 20050514
  Transmission Date: 20060501
  Serious: Yes (Other)
  Sender: FDA-Public Use
  Company Number: 2005075456

PATIENT
  Sex: Female
  Weight: 63.5036 kg

DRUGS (1)
  1. BEXTRA [Suspect]
     Indication: SPONDYLITIS
     Dosage: 10 MG (10 MG, 1 IN 1 D), UNKNOWN
     Route: 065
     Dates: start: 20030101, end: 20040101

REACTIONS (4)
  - DYSPNOEA [None]
  - FLATULENCE [None]
  - MYOCARDIAL ISCHAEMIA [None]
  - RASH MACULAR [None]
